FAERS Safety Report 5852312-2 (Version None)
Quarter: 2008Q3

REPORT INFORMATION
  Report Type: 
  Country: None (occurrence: None)
  Receive Date: 20080819
  Receipt Date: 20080813
  Transmission Date: 20090109
  Serious: Yes (Hospitalization)
  Sender: FDA-Public Use
  Company Number: 1000000496

PATIENT
  Age: 51 Year
  Sex: Male

DRUGS (7)
  1. LEXAPRO [Suspect]
  2. PEG-INTRON [Suspect]
     Indication: HEPATITIS C
     Dosage: 120 MCG QW (120 MCG, 1 IN 1 WK),SUBCUTANEOUS
     Route: 058
     Dates: end: 20080101
  3. REBETOL [Suspect]
     Indication: HEPATITIS C
     Dosage: ORAL
     Route: 048
     Dates: end: 20080101
  4. ADVAIR DISKUS 100/50 [Suspect]
  5. TRAZODONE HCL [Suspect]
  6. VALIUM [Suspect]
  7. METHADONE HCL [Suspect]

REACTIONS (4)
  - CONVULSION [None]
  - DRUG INTOLERANCE [None]
  - GASTROENTERITIS [None]
  - HEADACHE [None]
